FAERS Safety Report 4651704-7 (Version None)
Quarter: 2005Q2

REPORT INFORMATION
  Report Type: 
  Country: None (occurrence: None)
  Receive Date: 20050404
  Receipt Date: 20041123
  Transmission Date: 20051028
  Serious: No
  Sender: FDA-Public Use
  Company Number: USA041184731

PATIENT
  Sex: Male

DRUGS (1)
  1. CYMBALTA [Suspect]
     Dates: start: 20041001, end: 20041001

REACTIONS (2)
  - FEELING ABNORMAL [None]
  - MYDRIASIS [None]
